FAERS Safety Report 7865887-9 (Version None)
Quarter: 2011Q4

REPORT INFORMATION
  Report Type: 
  Country: None (occurrence: None)
  Receive Date: 20111028
  Receipt Date: 20110315
  Transmission Date: 20120403
  Serious: Yes (Hospitalization)
  Sender: FDA-Public Use
  Company Number: US-GLAXOSMITHKLINE-A0918317A

PATIENT
  Age: 55 Year
  Sex: Male

DRUGS (3)
  1. CLONIDINE [Concomitant]
  2. ATENOLOL [Suspect]
     Indication: HYPERTENSION
     Route: 065
     Dates: start: 20100501, end: 20110301
  3. ADVAIR DISKUS 100/50 [Suspect]
     Indication: CHRONIC OBSTRUCTIVE PULMONARY DISEASE
     Dosage: 1PUFF TWICE PER DAY
     Route: 055
     Dates: start: 20110201

REACTIONS (1)
  - DYSPNOEA [None]
